FAERS Safety Report 23977394 (Version 2)
Quarter: 2024Q2

REPORT INFORMATION
  Report Type: Report from Study
  Country: US (occurrence: US)
  Receive Date: 20240614
  Receipt Date: 20240619
  Transmission Date: 20240716
  Serious: No
  Sender: FDA-Public Use
  Company Number: US-BRISTOL-MYERS SQUIBB COMPANY-2024-094078

PATIENT
  Age: 62 Year
  Sex: Female
  Weight: 115.21 kg

DRUGS (1)
  1. ORENCIA [Suspect]
     Active Substance: ABATACEPT
     Indication: Rheumatoid arthritis
     Route: 058

REACTIONS (5)
  - Hypersensitivity [Unknown]
  - Seasonal allergy [Unknown]
  - Illness [Unknown]
  - Wheezing [Unknown]
  - Dyspnoea [Unknown]
